FAERS Safety Report 15431225 (Version 1)
Quarter: 2018Q3

REPORT INFORMATION
  Report Type: Spontaneous
  Country: US (occurrence: US)
  Receive Date: 20180926
  Receipt Date: 20180926
  Transmission Date: 20181010
  Serious: No
  Sender: FDA-Public Use
  Company Number: US-ALLERGAN-1732475US

PATIENT
  Sex: Female

DRUGS (1)
  1. ZENPEP [Suspect]
     Active Substance: PANCRELIPASE AMYLASE\PANCRELIPASE LIPASE\PANCRELIPASE PROTEASE
     Indication: DIVERTICULUM
     Dosage: 40,000, QD
     Route: 065

REACTIONS (3)
  - Expired product administered [Unknown]
  - Incorrect dosage administered [Unknown]
  - Intentional product misuse [Unknown]
